FAERS Safety Report 9645931 (Version 1)
Quarter: 2013Q4

REPORT INFORMATION
  Report Type: Spontaneous
  Country: GB (occurrence: GB)
  Receive Date: 20131025
  Receipt Date: 20131025
  Transmission Date: 20140711
  Serious: Yes (Life-Threatening)
  Sender: FDA-Public Use
  Company Number: GB-BAUSCH-BL-2013-005542

PATIENT
  Age: 8 Week
  Sex: Female
  Weight: 1.35 kg

DRUGS (11)
  1. CYCLOPENTOLATE [Suspect]
     Indication: RETINOPATHY OF PREMATURITY
     Dosage: 1 DROP
     Route: 047
     Dates: start: 20131001, end: 20131001
  2. CHLOROTHIAZIDE [Concomitant]
     Dates: start: 20130927
  3. ERGOCALCIFEROL/ASCORBIC ACID/PYRIDOXINE HYDROCHLORIDE/RETINOL/RIBOFLAVIN/NICOTINAMIDE/CALCIUM PANTOT [Concomitant]
     Dates: start: 20130826
  4. DOMPERIDONE [Concomitant]
     Dates: start: 20130911
  5. FOLIC ACID [Concomitant]
     Dates: start: 20130826
  6. SODIUM ALGINATE/MAGNESIUM ALGINATE [Concomitant]
  7. PHENYLEPHRINE HYDROCHLORIDE [Concomitant]
  8. PROXYMETACAINE [Concomitant]
  9. RANITIDINE HYDROCHLORIDE [Concomitant]
     Dates: start: 20130911
  10. SODIUM FEREDETATE [Concomitant]
     Dates: start: 20130906
  11. SPIRONOLACTONE [Concomitant]
     Dates: start: 20130927

REACTIONS (4)
  - Apnoeic attack [Recovered/Resolved]
  - Cyanosis [Unknown]
  - Vomiting [Unknown]
  - Bradycardia [Unknown]
